FAERS Safety Report 7513741-4 (Version None)
Quarter: 2011Q2

REPORT INFORMATION
  Report Type: 
  Country: None (occurrence: None)
  Receive Date: 20110531
  Receipt Date: 20110526
  Transmission Date: 20111010
  Serious: Yes (Other)
  Sender: FDA-Public Use
  Company Number: DK-PFIZER INC-2010143256

PATIENT
  Age: 69 Year
  Sex: Male
  Weight: 117.4 kg

DRUGS (1)
  1. VARENICLINE TARTRATE [Suspect]
     Dosage: 1 MG, 2X/DAY
     Route: 048
     Dates: start: 20100726, end: 20100912

REACTIONS (5)
  - CONFUSIONAL STATE [None]
  - AMNESIA [None]
  - CONVULSION [None]
  - AUTOMATISM EPILEPTIC [None]
  - HYPERTENSION [None]
